FAERS Safety Report 17882133 (Version 1)
Quarter: 2020Q2

REPORT INFORMATION
  Report Type: Spontaneous
  Country: DE (occurrence: DE)
  Receive Date: 20200610
  Receipt Date: 20200610
  Transmission Date: 20200714
  Serious: Yes (Death, Other)
  Sender: FDA-Public Use
  Company Number: NVSC2020DE161094

PATIENT
  Age: 57 Year
  Sex: Male

DRUGS (5)
  1. DOCETAXEL. [Suspect]
     Active Substance: DOCETAXEL
     Indication: PRODUCT USED FOR UNKNOWN INDICATION
     Dosage: UNK
     Route: 065
     Dates: start: 20171201
  2. DOCETAXEL. [Suspect]
     Active Substance: DOCETAXEL
     Dosage: 100 MG, QD
     Route: 065
     Dates: start: 201806, end: 201810
  3. DOCETAXEL. [Suspect]
     Active Substance: DOCETAXEL
     Dosage: UNK
     Route: 065
     Dates: start: 201803, end: 201804
  4. VARGATEF [Suspect]
     Active Substance: NINTEDANIB
     Indication: ADENOCARCINOMA
     Dosage: 300 MG, QD
     Route: 048
     Dates: start: 201812, end: 201904
  5. VARGATEF [Suspect]
     Active Substance: NINTEDANIB
     Indication: NON-SMALL CELL LUNG CANCER
     Dosage: 400MG QD
     Route: 048
     Dates: start: 20171201, end: 201812

REACTIONS (4)
  - Palmar-plantar erythrodysaesthesia syndrome [Fatal]
  - Epidermolysis [Fatal]
  - Malignant neoplasm progression [Fatal]
  - Arthralgia [Fatal]

NARRATIVE: CASE EVENT DATE: 20181109
